FAERS Safety Report 8760632 (Version 2)
Quarter: 2012Q4

REPORT INFORMATION
  Report Type: Spontaneous
  Country: US (occurrence: None)
  Receive Date: 20120821
  Receipt Date: 20121129
  Transmission Date: 20130627
  Serious: Yes (Hospitalization)
  Sender: FDA-Public Use
  Company Number: JPI-P-024003

PATIENT
  Age: 34 Year
  Sex: Female
  Weight: 63.5 kg

DRUGS (10)
  1. XYREM [Suspect]
     Indication: CATAPLEXY
     Route: 048
     Dates: start: 20080618
  2. XYREM [Suspect]
     Indication: CATAPLEXY
     Route: 048
  3. XYREM [Suspect]
     Indication: CATAPLEXY
     Dosage: 9 GM (4.5 GM, 2 IN 2 D), ORAL
     Route: 048
     Dates: end: 2012
  4. XYREM [Suspect]
     Indication: CATAPLEXY
     Dosage: 9 GM (4.5 GM, 2 IN 2 D), ORAL
     Route: 048
     Dates: start: 2012
  5. ARMODAFINIL [Concomitant]
  6. ANTIBIOTIC [Concomitant]
  7. HYDROCODONE/APAP [Concomitant]
  8. CYCLOBENZAPRINE HYDROCHLORIDE [Concomitant]
  9. IBUPROFEN [Concomitant]
  10. CETIRIZINE HYDROCHLORIDE [Concomitant]

REACTIONS (6)
  - Accidental overdose [None]
  - Weight decreased [None]
  - Irritability [None]
  - Victim of abuse [None]
  - Unevaluable event [None]
  - Incorrect dose administered [None]
